FAERS Safety Report 17082036 (Version 1)
Quarter: 2019Q4

REPORT INFORMATION
  Report Type: Spontaneous
  Country: US (occurrence: US)
  Receive Date: 20191127
  Receipt Date: 20191127
  Transmission Date: 20200122
  Serious: No
  Sender: FDA-Public Use
  Company Number: US-PFIZER INC-2019508015

PATIENT
  Age: 69 Year
  Sex: Female
  Weight: 45.35 kg

DRUGS (2)
  1. REVATIO [Suspect]
     Active Substance: SILDENAFIL CITRATE
     Dosage: UNK
  2. ORENITRAM [Suspect]
     Active Substance: TREPROSTINIL
     Dosage: 2 MG, 3X/DAY
     Route: 048
     Dates: start: 20190517

REACTIONS (5)
  - Palpitations [Unknown]
  - Peripheral swelling [Unknown]
  - Epistaxis [Unknown]
  - Dyspnoea exertional [Unknown]
  - Fluid retention [Unknown]
